FAERS Safety Report 8409572-3 (Version None)
Quarter: 2012Q2

REPORT INFORMATION
  Report Type: 
  Country: None (occurrence: None)
  Receive Date: 20120531
  Receipt Date: 20120531
  Transmission Date: 20120825
  Serious: No
  Sender: FDA-Public Use
  Company Number: None

PATIENT
  Age: 50 Year
  Sex: Female
  Weight: 81.4 kg

DRUGS (1)
  1. IRON DEXTRAN [Suspect]
     Dosage: 25 MG ONCE IV
     Route: 042
     Dates: start: 20120316, end: 20120316

REACTIONS (8)
  - BLOOD PRESSURE INCREASED [None]
  - PRURITUS GENERALISED [None]
  - CHEST DISCOMFORT [None]
  - BACK PAIN [None]
  - URTICARIA [None]
  - DYSMENORRHOEA [None]
  - DYSPNOEA [None]
  - TONGUE DISORDER [None]
